FAERS Safety Report 10829820 (Version 1)
Quarter: 2015Q1

REPORT INFORMATION
  Report Type: Report from Study
  Country: US (occurrence: US)
  Receive Date: 20150219
  Receipt Date: 20150219
  Transmission Date: 20150721
  Serious: Yes (Other)
  Sender: FDA-Public Use
  Company Number: US-ABBVIE-14P-163-1188416-00

PATIENT
  Sex: Male

DRUGS (2)
  1. ADDITIONAL MEDS FOR RA SPECIFICS UNKNOWN [Concomitant]
     Indication: RHEUMATOID ARTHRITIS
  2. HUMIRA [Suspect]
     Active Substance: ADALIMUMAB
     Indication: RHEUMATOID ARTHRITIS
     Dates: end: 201311

REACTIONS (5)
  - Back pain [Unknown]
  - Pain [Unknown]
  - Myocardial infarction [Not Recovered/Not Resolved]
  - Arthralgia [Unknown]
  - Groin pain [Unknown]

NARRATIVE: CASE EVENT DATE: 2013
